FAERS Safety Report 5367657-2 (Version None)
Quarter: 2007Q2

REPORT INFORMATION
  Report Type: 
  Country: None (occurrence: None)
  Receive Date: 20070622
  Receipt Date: 20070202
  Transmission Date: 20071010
  Serious: No
  Sender: FDA-Public Use
  Company Number: US-ASTRAZENECA-2007UW02274

PATIENT
  Age: 7 Year
  Sex: Male
  Weight: 27.2 kg

DRUGS (2)
  1. PULMICORT [Suspect]
     Indication: ASTHMA
     Route: 055
     Dates: start: 20061201
  2. ZYRTEC [Concomitant]

REACTIONS (2)
  - ABDOMINAL PAIN UPPER [None]
  - PHARYNGOLARYNGEAL PAIN [None]
